FAERS Safety Report 5903086-8 (Version None)
Quarter: 2008Q3

REPORT INFORMATION
  Report Type: 
  Country: None (occurrence: None)
  Receive Date: 20080930
  Receipt Date: 20080922
  Transmission Date: 20090109
  Serious: Yes (Death)
  Sender: FDA-Public Use
  Company Number: PE-ROCHE-587565

PATIENT
  Sex: Male
  Weight: 39 kg

DRUGS (3)
  1. CAPECITABINE [Suspect]
     Indication: GASTRIC CANCER
     Dosage: FREQUENCY: DAY 1-14 EVERY 3 WEEKS. THIRD CYCLE STARTED ON 6 SEPTEMBER 2008.
     Route: 048
     Dates: start: 20080726
  2. BEVACIZUMAB [Suspect]
     Indication: GASTRIC CANCER
     Dosage: TAKEN ON DAY 1 OF EVERY 3 WEEK CYCLE. THIRD CYCLE STARTED ON 6 SEPTEMBER 2008.
     Route: 042
     Dates: start: 20080726
  3. CISPLATIN [Suspect]
     Indication: GASTRIC CANCER
     Dosage: DOSAGE FORM: INFUSION. THIRD CYCLE STARTED ON 6 SEPTEMBER 2008.
     Route: 042
     Dates: start: 20080726

REACTIONS (1)
  - DEATH [None]
